FAERS Safety Report 4428237-6 (Version None)
Quarter: 2004Q3

REPORT INFORMATION
  Report Type: 
  Country: None (occurrence: None)
  Receive Date: 20040818
  Receipt Date: 20040810
  Transmission Date: 20050211
  Serious: Yes (Hospitalization)
  Sender: FDA-Public Use
  Company Number: US-MERCK-0408USA00871

PATIENT
  Age: 83 Year
  Sex: Female

DRUGS (2)
  1. SINGULAIR [Suspect]
     Route: 048
     Dates: end: 20040608
  2. RYTHMOL [Suspect]
     Route: 065
     Dates: end: 20040607

REACTIONS (2)
  - ALVEOLITIS [None]
  - LUNG INFILTRATION [None]
